FAERS Safety Report 10741364 (Version 3)
Quarter: 2015Q2

REPORT INFORMATION
  Report Type: Spontaneous
  Country: GB (occurrence: GB)
  Receive Date: 20150127
  Receipt Date: 20150405
  Transmission Date: 20150821
  Serious: Yes (Death, Other)
  Sender: FDA-Public Use
  Company Number: GB-ACTAVIS-2015-01156

PATIENT
  Age: 31 Year
  Sex: Female
  Weight: 59 kg

DRUGS (2)
  1. DOXORUBICIN (UNKNOWN) [Suspect]
     Active Substance: DOXORUBICIN
     Indication: CHEMOTHERAPY
     Dosage: 82 MG, UNKNOWN; 82 MG OVER TWO DAYS
     Route: 042
  2. MEPACT [Suspect]
     Active Substance: MIFAMURTIDE
     Indication: OSTEOSARCOMA
     Dosage: 3.92 MG, UNKNOWN
     Route: 042
     Dates: start: 20130131, end: 20130527

REACTIONS (1)
  - Neutropenic sepsis [Fatal]
